FAERS Safety Report 8103627-9 (Version None)
Quarter: 2012Q1

REPORT INFORMATION
  Report Type: 
  Country: None (occurrence: None)
  Receive Date: 20120201
  Receipt Date: 20120117
  Transmission Date: 20120608
  Serious: Yes (Other)
  Sender: FDA-Public Use
  Company Number: RU-ROCHE-1035320

PATIENT
  Sex: Female

DRUGS (1)
  1. XENICAL [Suspect]
     Indication: OBESITY

REACTIONS (2)
  - MATERNAL EXPOSURE DURING PREGNANCY [None]
  - ABORTION SPONTANEOUS [None]
